FAERS Safety Report 5807465-9 (Version None)
Quarter: 2008Q3

REPORT INFORMATION
  Report Type: 
  Country: None (occurrence: None)
  Receive Date: 20080709
  Receipt Date: 20080709
  Transmission Date: 20090109
  Serious: Yes (Hospitalization)
  Sender: FDA-Public Use
  Company Number: None

PATIENT
  Age: 64 Year
  Sex: Female
  Weight: 75 kg

DRUGS (3)
  1. WARFARIN SODIUM [Suspect]
     Indication: ATRIAL FIBRILLATION
     Dosage: 3 MG EVERY DAY PO
     Route: 048
     Dates: start: 19950915
  2. WARFARIN SODIUM [Suspect]
     Indication: UPPER RESPIRATORY TRACT INFECTION
     Dosage: 3 MG EVERY DAY PO
     Route: 048
     Dates: start: 19950915
  3. AZITHROMYCIN [Suspect]
     Dates: start: 20080304, end: 20080309

REACTIONS (5)
  - ANAEMIA [None]
  - ECCHYMOSIS [None]
  - HAEMATOMA [None]
  - HAEMORRHAGE [None]
  - UPPER RESPIRATORY TRACT INFECTION [None]
